FAERS Safety Report 4661248-4 (Version None)
Quarter: 2005Q2

REPORT INFORMATION
  Report Type: 
  Country: None (occurrence: None)
  Receive Date: 20050429
  Receipt Date: 20040525
  Transmission Date: 20051028
  Serious: Yes (Hospitalization)
  Sender: FDA-Public Use
  Company Number: 2004035519

PATIENT
  Sex: Female

DRUGS (1)
  1. BENADRYL [Suspect]
     Dosage: 30-50 PILLS ONE TIME,ORAL
     Route: 048
     Dates: start: 20040525, end: 20040525

REACTIONS (2)
  - NO ADVERSE EFFECT [None]
  - OVERDOSE [None]
